FAERS Safety Report 7076740 (Version 19)
Quarter: 2013Q3

REPORT INFORMATION
  Report Type: Report from Study
  Country: CA (occurrence: CA)
  Receive Date: 20090810
  Receipt Date: 20130923
  Transmission Date: 20140515
  Serious: Yes (Other)
  Sender: FDA-Public Use
  Company Number: PHHY2009CA13879

PATIENT
  Age: 54 Year
  Sex: Male

DRUGS (2)
  1. SANDOSTATIN LAR [Suspect]
     Indication: ACROMEGALY
     Dosage: 40 MG, QMO
     Route: 030
     Dates: start: 20080313
  2. SANDOSTATIN LAR [Suspect]
     Dosage: 60 MG, QMO
     Route: 030

REACTIONS (7)
  - Loss of consciousness [Unknown]
  - Blood pressure increased [Unknown]
  - Dehydration [Unknown]
  - Nausea [Unknown]
  - Abdominal distension [Unknown]
  - Dyspnoea [Unknown]
  - Hypersensitivity [Unknown]
